FAERS Safety Report 19358452 (Version 2)
Quarter: 2021Q2

REPORT INFORMATION
  Report Type: Report from Study
  Country: KR (occurrence: KR)
  Receive Date: 20210531
  Receipt Date: 20210605
  Transmission Date: 20210717
  Serious: Yes (Hospitalization, Other)
  Sender: FDA-Public Use
  Company Number: KR-AMGEN-KORCT2021082206

PATIENT
  Age: 56 Year
  Sex: Male

DRUGS (53)
  1. DECITABINE. [Concomitant]
     Active Substance: DECITABINE
     Indication: PRODUCT USED FOR UNKNOWN INDICATION
     Dosage: 20 UNK
     Dates: start: 20110419, end: 20110423
  2. DECITABINE. [Concomitant]
     Active Substance: DECITABINE
     Dosage: 20 UNK
     Dates: start: 20110419, end: 20110423
  3. DECITABINE. [Concomitant]
     Active Substance: DECITABINE
     Dosage: 20 UNK
     Dates: start: 20111017, end: 20111021
  4. CEFPIROME [Concomitant]
     Active Substance: CEFPIROME
     Dosage: 1 UNK
     Dates: start: 20110711, end: 20110719
  5. CEFPIROME [Concomitant]
     Active Substance: CEFPIROME
     Dosage: 1 UNK
     Dates: start: 20110812, end: 20110902
  6. CEFPIROME [Concomitant]
     Active Substance: CEFPIROME
     Dosage: 10 MILLIGRAM
     Dates: start: 20110711, end: 20110719
  7. CEFPIROME [Concomitant]
     Active Substance: CEFPIROME
     Dosage: 10 MILLIGRAM
     Dates: start: 20110812, end: 20110902
  8. LENOGRASTIM [Concomitant]
     Active Substance: LENOGRASTIM
     Dosage: 250 UNK
     Dates: start: 20111230, end: 20111230
  9. FILGRASTIM [Suspect]
     Active Substance: FILGRASTIM
     Dosage: 300 UNK
     Route: 065
     Dates: start: 20121004, end: 20121005
  10. DECITABINE. [Concomitant]
     Active Substance: DECITABINE
     Dosage: 20 UNK
     Dates: start: 20110725, end: 20110729
  11. DECITABINE. [Concomitant]
     Active Substance: DECITABINE
     Dosage: 20 UNK
     Dates: start: 20120414, end: 20120418
  12. DECITABINE. [Concomitant]
     Active Substance: DECITABINE
     Dosage: 20 UNK
     Dates: start: 20121109, end: 20121113
  13. DECITABINE. [Concomitant]
     Active Substance: DECITABINE
     Dosage: 20 UNK
     Dates: start: 20121109, end: 20121113
  14. DECITABINE. [Concomitant]
     Active Substance: DECITABINE
     Dosage: 20 UNK
     Dates: start: 20121227, end: 20121231
  15. CEFPIROME [Concomitant]
     Active Substance: CEFPIROME
     Dosage: 4 UNK
     Dates: start: 20110704, end: 20110707
  16. FILGRASTIM [Suspect]
     Active Substance: FILGRASTIM
     Indication: PRODUCT USED FOR UNKNOWN INDICATION
     Dosage: 300 UNK
     Route: 065
     Dates: start: 20110512, end: 20110516
  17. DECITABINE. [Concomitant]
     Active Substance: DECITABINE
     Dosage: 20 UNK
     Dates: start: 20110610, end: 20110614
  18. DECITABINE. [Concomitant]
     Active Substance: DECITABINE
     Dosage: 20 UNK
     Dates: start: 20120414, end: 20120418
  19. DECITABINE. [Concomitant]
     Active Substance: DECITABINE
     Dosage: 20 UNK
     Dates: start: 20111205, end: 20111209
  20. CEFPIROME [Concomitant]
     Active Substance: CEFPIROME
     Indication: PRODUCT USED FOR UNKNOWN INDICATION
     Dosage: 10 MILLIGRAM
     Dates: start: 20110512, end: 20110530
  21. CEFPIROME [Concomitant]
     Active Substance: CEFPIROME
     Dosage: 4 UNK
     Dates: start: 20110812, end: 20110902
  22. LENOGRASTIM [Concomitant]
     Active Substance: LENOGRASTIM
     Indication: PRODUCT USED FOR UNKNOWN INDICATION
     Dosage: 250 UNK
     Dates: start: 20110425, end: 20110511
  23. FILGRASTIM [Suspect]
     Active Substance: FILGRASTIM
     Dosage: 300 UNK
     Route: 065
     Dates: start: 20120502, end: 20120508
  24. DECITABINE. [Concomitant]
     Active Substance: DECITABINE
     Dosage: 20 UNK
     Dates: start: 20110905, end: 20110909
  25. DECITABINE. [Concomitant]
     Active Substance: DECITABINE
     Dosage: 20 UNK
     Dates: start: 20111205, end: 20111209
  26. DECITABINE. [Concomitant]
     Active Substance: DECITABINE
     Dosage: 20 UNK
     Dates: start: 20120603, end: 20120607
  27. DECITABINE. [Concomitant]
     Active Substance: DECITABINE
     Dosage: 20 UNK
     Dates: start: 20120721, end: 20120725
  28. DECITABINE. [Concomitant]
     Active Substance: DECITABINE
     Dosage: 20 UNK
     Dates: start: 20120917, end: 20120921
  29. CEFDITOREN [Concomitant]
     Active Substance: CEFDITOREN
     Indication: PRODUCT USED FOR UNKNOWN INDICATION
     Dosage: 300 MILLIGRAM
     Dates: start: 20111114, end: 20111123
  30. CEFPIROME [Concomitant]
     Active Substance: CEFPIROME
     Dosage: 10 MILLIGRAM
     Dates: start: 20110704, end: 20110707
  31. LENOGRASTIM [Concomitant]
     Active Substance: LENOGRASTIM
     Dosage: 250 UNK
     Dates: start: 20111228, end: 20111228
  32. FILGRASTIM [Suspect]
     Active Substance: FILGRASTIM
     Dosage: 300 UNK
     Route: 065
     Dates: start: 20110628, end: 20110705
  33. FILGRASTIM [Suspect]
     Active Substance: FILGRASTIM
     Dosage: 300 UNK
     Route: 065
     Dates: start: 20120808, end: 20120808
  34. DECITABINE. [Concomitant]
     Active Substance: DECITABINE
     Dosage: 20 UNK
     Dates: start: 20110610, end: 20110614
  35. DECITABINE. [Concomitant]
     Active Substance: DECITABINE
     Dosage: 20 UNK
     Dates: start: 20110905, end: 20110909
  36. DECITABINE. [Concomitant]
     Active Substance: DECITABINE
     Dosage: 20 UNK
     Dates: start: 20120603, end: 20120607
  37. LENOGRASTIM [Concomitant]
     Active Substance: LENOGRASTIM
     Dosage: 250 UNK
     Dates: start: 20111109, end: 20111109
  38. FILGRASTIM [Suspect]
     Active Substance: FILGRASTIM
     Dosage: 300 UNK
     Route: 065
     Dates: start: 20120625, end: 20120628
  39. DECITABINE. [Concomitant]
     Active Substance: DECITABINE
     Dosage: 20 UNK
     Dates: start: 20110725, end: 20110729
  40. DECITABINE. [Concomitant]
     Active Substance: DECITABINE
     Dosage: 20 UNK
     Dates: start: 20120721, end: 20120725
  41. DECITABINE. [Concomitant]
     Active Substance: DECITABINE
     Dosage: 20 UNK
     Dates: start: 20120917, end: 20120921
  42. DECITABINE. [Concomitant]
     Active Substance: DECITABINE
     Dosage: 20 UNK
     Dates: start: 20121227, end: 20121231
  43. CEFDITOREN [Concomitant]
     Active Substance: CEFDITOREN
     Dosage: 300 MILLIGRAM
     Dates: start: 20120208, end: 20120220
  44. CEFPIROME [Concomitant]
     Active Substance: CEFPIROME
     Dosage: 4 UNK
     Dates: start: 20110512, end: 20110530
  45. CEFPIROME [Concomitant]
     Active Substance: CEFPIROME
     Dosage: 10 MILLIGRAM
     Dates: start: 20110512, end: 20110530
  46. ITRACONAZOLE. [Concomitant]
     Active Substance: ITRACONAZOLE
     Indication: PRODUCT USED FOR UNKNOWN INDICATION
     Dosage: 40 UNK
     Dates: start: 20110823, end: 20110829
  47. ITRACONAZOLE. [Concomitant]
     Active Substance: ITRACONAZOLE
     Dosage: 40 UNK
     Dates: start: 20110928, end: 20110930
  48. FILGRASTIM [Suspect]
     Active Substance: FILGRASTIM
     Dosage: 300 UNK
     Route: 065
     Dates: start: 20121012, end: 20121012
  49. DECITABINE. [Concomitant]
     Active Substance: DECITABINE
     Dosage: 20 UNK
     Dates: start: 20111017, end: 20111021
  50. CEFPIROME [Concomitant]
     Active Substance: CEFPIROME
     Dosage: 1 UNK
     Dates: start: 20110704, end: 20110707
  51. CEFPIROME [Concomitant]
     Active Substance: CEFPIROME
     Dosage: 4 UNK
     Dates: start: 20110711, end: 20110719
  52. LENOGRASTIM [Concomitant]
     Active Substance: LENOGRASTIM
     Dosage: 250 UNK
     Dates: start: 20110926, end: 20110930
  53. LENOGRASTIM [Concomitant]
     Active Substance: LENOGRASTIM
     Dosage: 250 UNK
     Dates: start: 20111107, end: 20111107

REACTIONS (1)
  - Muscle abscess [Not Recovered/Not Resolved]

NARRATIVE: CASE EVENT DATE: 20130111
